FAERS Safety Report 8794066 (Version 2)
Quarter: 2012Q4

REPORT INFORMATION
  Report Type: 
  Country: US (occurrence: US)
  Receive Date: 20120918
  Receipt Date: 20121018
  Transmission Date: 20130627
  Serious: No
  Sender: FDA-Public Use
  Company Number: US-BIOGENIDEC-2012BI037083

PATIENT
  Sex: Female

DRUGS (2)
  1. TYSABRI [Suspect]
     Indication: MULTIPLE SCLEROSIS
     Route: 042
     Dates: start: 20110311, end: 201207
  2. CYTOXAN [Concomitant]
     Indication: MULTIPLE SCLEROSIS

REACTIONS (2)
  - Multiple sclerosis [Unknown]
  - Drug ineffective [Not Recovered/Not Resolved]
